FAERS Safety Report 8262593-6 (Version None)
Quarter: 2012Q2

REPORT INFORMATION
  Report Type: 
  Country: None (occurrence: None)
  Receive Date: 20120405
  Receipt Date: 20120403
  Transmission Date: 20120825
  Serious: Yes (Death, Other)
  Sender: FDA-Public Use
  Company Number: JP-JNJFOC-20101101854

PATIENT
  Sex: Female
  Weight: 57 kg

DRUGS (25)
  1. IODINE [Concomitant]
     Indication: PROPHYLAXIS
     Route: 049
     Dates: start: 20100220, end: 20100330
  2. AMINO ACID INJ [Concomitant]
     Route: 042
     Dates: start: 20100312, end: 20100315
  3. PRIMPERAN TAB [Concomitant]
     Route: 042
     Dates: start: 20100312, end: 20100315
  4. LASIX [Concomitant]
     Route: 042
     Dates: start: 20100317, end: 20100319
  5. LASIX [Concomitant]
     Route: 042
     Dates: start: 20100312, end: 20100315
  6. FAMOTIDINE [Concomitant]
     Route: 042
     Dates: start: 20100319, end: 20100319
  7. SOLDEM 3A [Concomitant]
     Route: 042
     Dates: start: 20100419
  8. FLUMARIN [Concomitant]
     Indication: PROPHYLAXIS
     Route: 042
     Dates: start: 20100330, end: 20100402
  9. FAMOTIDINE [Concomitant]
     Route: 048
     Dates: start: 20100305, end: 20100312
  10. FAMOTIDINE [Concomitant]
     Route: 042
     Dates: start: 20100320
  11. XYLOCAINE [Concomitant]
     Dates: start: 20100330
  12. DOXIL [Suspect]
     Route: 042
     Dates: start: 20100219, end: 20100219
  13. GLYCYRON [Concomitant]
     Route: 048
     Dates: start: 20100305, end: 20100312
  14. FAMOTIDINE [Concomitant]
     Route: 042
     Dates: start: 20100317, end: 20100301
  15. FLURBIPROFEN [Concomitant]
     Route: 042
     Dates: start: 20100330
  16. ASCORBIC ACID [Concomitant]
     Route: 042
     Dates: start: 20100317, end: 20100318
  17. LOXONIN [Concomitant]
     Route: 048
     Dates: start: 20100327, end: 20100329
  18. PRIMPERAN TAB [Concomitant]
     Route: 042
     Dates: start: 20100321
  19. VITAMEDIN [Concomitant]
     Route: 042
     Dates: start: 20100317, end: 20100318
  20. MUCOSTA [Concomitant]
     Indication: PROPHYLAXIS
     Route: 048
     Dates: start: 20100226, end: 20100312
  21. LASIX [Concomitant]
     Route: 042
     Dates: start: 20100401
  22. AZUNOL [Concomitant]
     Route: 049
     Dates: start: 20100330
  23. DOXIL [Suspect]
     Indication: OVARIAN CANCER RECURRENT
     Route: 042
     Dates: start: 20100319, end: 20100319
  24. CEFTRIAXONE SODIUM [Concomitant]
     Indication: PROPHYLAXIS
     Route: 042
     Dates: start: 20100403, end: 20100420
  25. AMIKAMYCIN [Concomitant]
     Indication: PROPHYLAXIS
     Route: 042
     Dates: start: 20100403, end: 20100413

REACTIONS (3)
  - ASCITES [None]
  - ILEUS [None]
  - OVARIAN CANCER RECURRENT [None]
